FAERS Safety Report 7908395 (Version 2)
Quarter: 2012Q4

REPORT INFORMATION
  Report Type: Report from Study
  Country: FR (occurrence: FR)
  Receive Date: 20110421
  Receipt Date: 20121016
  Transmission Date: 20130627
  Serious: Yes (Hospitalization)
  Sender: FDA-Public Use
  Company Number: FR-ROCHE-772224

PATIENT
  Age: 63 Year
  Sex: Female
  Weight: 74 kg

DRUGS (4)
  1. BEVACIZUMAB [Suspect]
     Indication: BRAIN NEOPLASM MALIGNANT
     Dosage: date of last dose prior to SAE- 14/Mayr/2011; cumulative dose -2220 mg
     Route: 042
     Dates: start: 20110214
  2. KEPPRA [Concomitant]
     Indication: CONVULSION PROPHYLAXIS
     Route: 048
  3. MEDROL [Concomitant]
     Route: 048
  4. TRIFLUCAN [Concomitant]
     Indication: FUNGAL INFECTION
     Route: 048

REACTIONS (1)
  - Hyperglycaemia [Recovered/Resolved]
